FAERS Safety Report 7980170-9 (Version None)
Quarter: 2011Q4

REPORT INFORMATION
  Report Type: 
  Country: None (occurrence: None)
  Receive Date: 20111212
  Receipt Date: 20111130
  Transmission Date: 20120403
  Serious: Yes (Other)
  Sender: FDA-Public Use
  Company Number: 2011P1010909

PATIENT
  Age: 36 Year
  Sex: Female
  Weight: 160 kg

DRUGS (5)
  1. LAMOTRIGINE [Suspect]
     Indication: POST-TRAUMATIC STRESS DISORDER
     Dosage: 25 MG;QD;PO 50 MG;QD;PO
     Route: 048
     Dates: start: 20110701, end: 20110101
  2. LAMOTRIGINE [Suspect]
     Indication: POST-TRAUMATIC STRESS DISORDER
     Dosage: 25 MG;QD;PO 50 MG;QD;PO
     Route: 048
     Dates: start: 20110101, end: 20111108
  3. LAMOTRIGINE [Suspect]
     Indication: POST-TRAUMATIC STRESS DISORDER
     Dosage: 25 MG;QD;PO 50 MG;QD;PO
     Route: 048
     Dates: start: 20110101, end: 20110101
  4. MULTI-VITAMIN [Concomitant]
  5. KLONOPIN [Concomitant]

REACTIONS (11)
  - OFF LABEL USE [None]
  - TREMOR [None]
  - BIPOLAR DISORDER [None]
  - DIZZINESS [None]
  - WITHDRAWAL SYNDROME [None]
  - INSOMNIA [None]
  - FATIGUE [None]
  - FEELING ABNORMAL [None]
  - FEELING COLD [None]
  - PANIC DISORDER [None]
  - AGORAPHOBIA [None]
